FAERS Safety Report 5934080-9 (Version None)
Quarter: 2008Q4

REPORT INFORMATION
  Report Type: 
  Country: None (occurrence: None)
  Receive Date: 20081029
  Receipt Date: 20081022
  Transmission Date: 20090506
  Serious: Yes (Death, Other)
  Sender: FDA-Public Use
  Company Number: US-MERCK-0810USA04336

PATIENT

DRUGS (1)
  1. PRIMAXIN [Suspect]
     Route: 042

REACTIONS (2)
  - CONVULSION [None]
  - DEATH [None]
